FAERS Safety Report 16556213 (Version 1)
Quarter: 2019Q3

REPORT INFORMATION
  Report Type: Spontaneous
  Country: NO (occurrence: NO)
  Receive Date: 20190710
  Receipt Date: 20190710
  Transmission Date: 20191004
  Serious: Yes (Hospitalization)
  Sender: FDA-Public Use
  Company Number: NO-PFIZER INC-2018223842

PATIENT
  Age: 37 Year
  Sex: Female

DRUGS (4)
  1. GONAL-F [Concomitant]
     Active Substance: FOLLITROPIN
     Indication: IN VITRO FERTILISATION
     Dosage: UNK
     Dates: start: 201610
  2. OVITRELLE [Concomitant]
     Active Substance: CHORIOGONADOTROPIN ALFA
     Indication: IN VITRO FERTILISATION
     Dosage: UNK
     Dates: start: 201610
  3. SYNARELA [Suspect]
     Active Substance: NAFARELIN ACETATE
     Dosage: 1 DF (1 SPRAY IN ONE NOSTRIL), 2X/DAY
     Route: 045
     Dates: start: 20161006, end: 20161019
  4. SYNARELA [Suspect]
     Active Substance: NAFARELIN ACETATE
     Indication: IN VITRO FERTILISATION
     Dosage: 2 DF (1 SPRAY IN EACH NOSTRIL), TWICE A DAY
     Route: 045
     Dates: start: 20160919, end: 20161006

REACTIONS (11)
  - Sinus congestion [Not Recovered/Not Resolved]
  - Incorrect dose administered [Not Recovered/Not Resolved]
  - Balance disorder [Not Recovered/Not Resolved]
  - Ear discomfort [Not Recovered/Not Resolved]
  - Vertigo positional [Not Recovered/Not Resolved]
  - Chronic sinusitis [Unknown]
  - Quality of life decreased [Not Recovered/Not Resolved]
  - Sinusitis [Not Recovered/Not Resolved]
  - Hypoacusis [Not Recovered/Not Resolved]
  - Nasal congestion [Unknown]
  - Rhinitis [Not Recovered/Not Resolved]

NARRATIVE: CASE EVENT DATE: 2016
